FAERS Safety Report 10860553 (Version 2)
Quarter: 2015Q1

REPORT INFORMATION
  Report Type: Spontaneous
  Country: JP (occurrence: JP)
  Receive Date: 20150223
  Receipt Date: 20150304
  Transmission Date: 20150721
  Serious: Yes (Hospitalization, Other)
  Sender: FDA-Public Use
  Company Number: JP-009507513-1502JPN009805

PATIENT
  Age: 87 Year
  Sex: Male

DRUGS (2)
  1. GLACTIV [Suspect]
     Active Substance: SITAGLIPTIN
     Indication: TYPE 2 DIABETES MELLITUS
     Dosage: DIVIDED DOSE, FREQUENCY UNKNOWN
     Route: 048
     Dates: start: 201401
  2. GLACTIV [Suspect]
     Active Substance: SITAGLIPTIN
     Dosage: DIVIDED DOSE, FREQUENCY UNKNOWN
     Route: 048
     Dates: start: 2014

REACTIONS (2)
  - Chronic kidney disease [Unknown]
  - Seronegative arthritis [Unknown]

NARRATIVE: CASE EVENT DATE: 2014
